FAERS Safety Report 11279509 (Version 1)
Quarter: 2015Q3

REPORT INFORMATION
  Report Type: Spontaneous
  Country: US (occurrence: US)
  Receive Date: 20150717
  Receipt Date: 20150717
  Transmission Date: 20151125
  Serious: Yes (Other)
  Sender: FDA-Public Use
  Company Number: US-BAYER-2015-373552

PATIENT
  Age: 92 Year
  Sex: Female

DRUGS (2)
  1. BISACODYL. [Concomitant]
     Active Substance: BISACODYL
     Dosage: UNK
  2. CIPRO [Suspect]
     Active Substance: CIPROFLOXACIN HYDROCHLORIDE
     Dosage: UNK

REACTIONS (10)
  - Rash [None]
  - Arthropod bite [None]
  - Swelling face [None]
  - Diarrhoea [None]
  - Muscular weakness [None]
  - Urinary incontinence [None]
  - Constipation [None]
  - Peripheral swelling [None]
  - Blister [None]
  - Diarrhoea [None]

NARRATIVE: CASE EVENT DATE: 20150706
